FAERS Safety Report 5821452-6 (Version None)
Quarter: 2008Q3

REPORT INFORMATION
  Report Type: 
  Country: None (occurrence: None)
  Receive Date: 20080724
  Receipt Date: 20080722
  Transmission Date: 20090109
  Serious: Yes (Hospitalization, Other)
  Sender: FDA-Public Use
  Company Number: B0345988A

PATIENT
  Age: 66 Year
  Sex: Male
  Weight: 75 kg

DRUGS (11)
  1. ZOVIRAX [Suspect]
     Indication: HERPES ZOSTER
     Dosage: 83.33MG THREE TIMES PER DAY
     Route: 042
     Dates: start: 20040914, end: 20040915
  2. PROCYLIN [Concomitant]
     Dosage: 60MG PER DAY
     Route: 048
     Dates: start: 20040929
  3. PRECIPITATED CALCIUM CARBONATE [Concomitant]
     Dosage: 3G PER DAY
     Route: 048
     Dates: start: 20040929
  4. MUCOSOLVAN [Concomitant]
     Dosage: 45MG PER DAY
     Route: 048
     Dates: start: 20040929
  5. CARVEDILOL [Concomitant]
     Dosage: 2.5MG PER DAY
     Route: 048
     Dates: start: 20040929
  6. ASPIRIN [Concomitant]
     Dosage: 100MG PER DAY
     Route: 048
     Dates: start: 20040929
  7. FLUITRAN [Concomitant]
     Dosage: 2MG PER DAY
     Route: 048
     Dates: start: 20040929
  8. ZANTAC [Concomitant]
     Dosage: 150MG PER DAY
     Route: 048
     Dates: start: 20040929
  9. EURODIN [Concomitant]
     Dosage: 1MG PER DAY
     Route: 048
     Dates: start: 20040929
  10. FRANDOL S [Concomitant]
     Dosage: 40MG PER DAY
     Route: 062
     Dates: start: 20040929
  11. MEROPENEM TRIHYDRATE [Concomitant]
     Indication: IMMUNE SYSTEM DISORDER
     Dosage: .5G PER DAY

REACTIONS (8)
  - ALTERED STATE OF CONSCIOUSNESS [None]
  - DYSLALIA [None]
  - ENCEPHALOPATHY [None]
  - EPILEPSY [None]
  - FALL [None]
  - GASTRITIS [None]
  - HEADACHE [None]
  - RESTLESSNESS [None]
